FAERS Safety Report 7524483-3 (Version None)
Quarter: 2011Q2

REPORT INFORMATION
  Report Type: 
  Country: None (occurrence: None)
  Receive Date: 20110606
  Receipt Date: 20110516
  Transmission Date: 20111010
  Serious: Yes (Hospitalization, Other)
  Sender: FDA-Public Use
  Company Number: US-BAYER-201034296NA

PATIENT
  Age: 19 Year
  Sex: Female
  Weight: 70.295 kg

DRUGS (9)
  1. ADVAIR DISKUS 100/50 [Concomitant]
     Dosage: 500/50MG
     Route: 045
  2. VICODIN [Concomitant]
  3. YAZ [Suspect]
     Indication: CONTRACEPTION
     Dosage: 1 TAB / DAY
  4. ALBUTEROL SULFATE AUTOHALER [Concomitant]
     Indication: ASTHMA
     Dosage: UNK
     Route: 045
     Dates: start: 19950101
  5. PROTONIX [Concomitant]
     Dosage: DAILY DOSE 40 MG
     Route: 048
  6. PHENERGAN HCL [Concomitant]
  7. YASMIN [Suspect]
     Indication: CONTRACEPTION
     Dosage: 1 TAB / DAY
     Route: 048
     Dates: start: 20040101, end: 20090809
  8. DROSPIRENONE AND ETHINYL ESTRADIOL [Suspect]
     Indication: CONTRACEPTION
     Dosage: 1 TAB / DAY
     Dates: start: 20040101, end: 20090809
  9. ACIPHEX [Concomitant]
     Indication: GASTROOESOPHAGEAL REFLUX DISEASE
     Dosage: UNK
     Route: 048
     Dates: start: 20060101

REACTIONS (19)
  - FUNGAL INFECTION [None]
  - GALLBLADDER INJURY [None]
  - ABDOMINAL PAIN [None]
  - VULVOVAGINAL PRURITUS [None]
  - CYST [None]
  - PELVIC MASS [None]
  - ADNEXA UTERI MASS [None]
  - VOMITING [None]
  - BILIARY DYSKINESIA [None]
  - DIARRHOEA [None]
  - GASTROOESOPHAGEAL REFLUX DISEASE [None]
  - PELVIC ADHESIONS [None]
  - CHOLECYSTITIS CHRONIC [None]
  - BREAST DISCHARGE [None]
  - NAUSEA [None]
  - VAGINITIS BACTERIAL [None]
  - ABDOMINAL PAIN UPPER [None]
  - HAEMORRHAGE [None]
  - PELVIC PAIN [None]
